FAERS Safety Report 8473124-X (Version None)
Quarter: 2012Q2

REPORT INFORMATION
  Report Type: 
  Country: None (occurrence: None)
  Receive Date: 20120627
  Receipt Date: 20120620
  Transmission Date: 20120825
  Serious: Yes (Other)
  Sender: FDA-Public Use
  Company Number: IT-ABBOTT-12P-083-0941447-00

PATIENT
  Sex: Male

DRUGS (6)
  1. FENOFIBRATE [Suspect]
     Indication: TYPE IIA HYPERLIPIDAEMIA
  2. FENOFIBRATE [Suspect]
     Indication: FAMILIAL HYPERTRIGLYCERIDAEMIA
  3. ASPIRIN [Concomitant]
     Indication: THROMBOCYTOSIS
  4. OLMESARTAN MEDOXOMIL [Concomitant]
     Indication: HYPERTENSION
  5. FENOFIBRATE [Suspect]
     Indication: TYPE IIA HYPERLIPIDAEMIA
     Dates: start: 20040101, end: 20110901
  6. FENOFIBRATE [Suspect]
     Indication: FAMILIAL HYPERTRIGLYCERIDAEMIA
     Dates: start: 20120301

REACTIONS (5)
  - PLATELET COUNT INCREASED [None]
  - HEPATIC STEATOSIS [None]
  - HYPERTENSION [None]
  - MYELOPROLIFERATIVE DISORDER [None]
  - THROMBOCYTOSIS [None]
